FAERS Safety Report 25862086 (Version 1)
Quarter: 2025Q3

REPORT INFORMATION
  Report Type: Report from Study
  Country: US (occurrence: US)
  Receive Date: 20250930
  Receipt Date: 20250930
  Transmission Date: 20251020
  Serious: Yes (Other)
  Sender: BAXTER
  Company Number: US-MLMSERVICE-20250901-PI629835-00222-1

PATIENT
  Age: 15 Year
  Sex: Female

DRUGS (2)
  1. METRONIDAZOLE [Suspect]
     Active Substance: METRONIDAZOLE
     Indication: Amoebiasis
     Route: 065
     Dates: end: 2024
  2. MINOCYCLINE [Concomitant]
     Active Substance: MINOCYCLINE HYDROCHLORIDE
     Route: 065
     Dates: start: 2023

REACTIONS (5)
  - Hallucination [Unknown]
  - Seizure cluster [Unknown]
  - Developmental regression [Unknown]
  - Aphasia [Unknown]
  - Amnesia [Unknown]

NARRATIVE: CASE EVENT DATE: 20240301
